FAERS Safety Report 23754533 (Version 4)
Quarter: 2024Q2

REPORT INFORMATION
  Report Type: Spontaneous
  Country: JP (occurrence: JP)
  Receive Date: 20240418
  Receipt Date: 20240624
  Transmission Date: 20240716
  Serious: Yes (Death, Life-Threatening, Hospitalization, Other)
  Sender: FDA-Public Use
  Company Number: JP-TAKEDA-2024TJP005478

PATIENT
  Age: 86 Year
  Sex: Female
  Weight: 45 kg

DRUGS (9)
  1. NINLARO [Suspect]
     Active Substance: IXAZOMIB CITRATE
     Indication: Plasma cell myeloma
     Dosage: 2.3 MILLIGRAM, 1/WEEK
     Route: 048
     Dates: start: 20220930, end: 20230202
  2. NINLARO [Suspect]
     Active Substance: IXAZOMIB CITRATE
     Dosage: 3 MILLIGRAM, 1/WEEK
     Route: 048
     Dates: start: 20230203, end: 20240201
  3. NINLARO [Suspect]
     Active Substance: IXAZOMIB CITRATE
     Dosage: 4 MILLIGRAM, 1/WEEK
     Route: 048
     Dates: start: 20240202, end: 20240503
  4. LANSOPRAZOLE [Concomitant]
     Active Substance: LANSOPRAZOLE
     Indication: Prophylaxis against gastrointestinal ulcer
     Dosage: 15 MILLIGRAM, QD
     Route: 048
     Dates: end: 20240510
  5. AMLODIPINE BESYLATE [Concomitant]
     Active Substance: AMLODIPINE BESYLATE
     Indication: Hypertension
     Dosage: 5 MILLIGRAM, QD
     Route: 048
     Dates: end: 20240510
  6. ATORVASTATIN CALCIUM [Concomitant]
     Active Substance: ATORVASTATIN CALCIUM
     Indication: Dyslipidaemia
     Dosage: 10 MILLIGRAM, QD
     Route: 048
     Dates: end: 20240510
  7. SULFAMETHOXAZOLE\TRIMETHOPRIM [Concomitant]
     Active Substance: SULFAMETHOXAZOLE\TRIMETHOPRIM
     Indication: Plasma cell myeloma
     Dosage: 1 DOSAGE FORM, QD
     Route: 048
     Dates: start: 202105, end: 20240510
  8. ZOVIRAX [Concomitant]
     Active Substance: ACYCLOVIR
     Indication: Plasma cell myeloma
     Dosage: 200 MILLIGRAM, QD
     Route: 048
     Dates: start: 202202, end: 20240510
  9. CALCIUM CARBONATE\CHOLECALCIFEROL\MAGNESIUM CARBONATE [Concomitant]
     Active Substance: CALCIUM CARBONATE\CHOLECALCIFEROL\MAGNESIUM CARBONATE
     Indication: Plasma cell myeloma
     Dosage: 2 DOSAGE FORM, QD
     Route: 048
     Dates: start: 20210716, end: 20240510

REACTIONS (12)
  - Arrhythmia [Fatal]
  - Cardiac failure [Fatal]
  - Thrombotic microangiopathy [Fatal]
  - Atypical haemolytic uraemic syndrome [Fatal]
  - Acute kidney injury [Fatal]
  - Carpal tunnel syndrome [Recovering/Resolving]
  - Tenosynovitis [Recovering/Resolving]
  - Abdominal pain upper [Unknown]
  - Diarrhoea [Unknown]
  - Constipation [Unknown]
  - Arthralgia [Unknown]
  - Myalgia [Unknown]

NARRATIVE: CASE EVENT DATE: 20221020
